FAERS Safety Report 19433277 (Version 5)
Quarter: 2021Q3

REPORT INFORMATION
  Report Type: Report from Study
  Country: BR (occurrence: BR)
  Receive Date: 20210618
  Receipt Date: 20210722
  Transmission Date: 20211014
  Serious: Yes (Hospitalization)
  Sender: FDA-Public Use
  Company Number: BR-ROCHE-2848931

PATIENT
  Age: 60 Year
  Sex: Female
  Weight: 52.59 kg

DRUGS (5)
  1. ALECTINIB. [Suspect]
     Active Substance: ALECTINIB
     Indication: NON-SMALL CELL LUNG CANCER
     Dosage: DOSE LAST STUDY DRUG ADMIN PRIOR SAE: 450 MG?START DATE OF MOST RECENT DOSE OF STUDY DRUG PRIOR TO S
     Route: 048
     Dates: start: 20180419
  2. OMEPRAZOLE. [Concomitant]
     Active Substance: OMEPRAZOLE
     Route: 048
     Dates: start: 20180615
  3. DIPYRONE [Concomitant]
     Active Substance: DIPYRONE
     Indication: HEADACHE
     Route: 048
     Dates: start: 20181006
  4. ENOXAPARIN [Concomitant]
     Active Substance: ENOXAPARIN
     Indication: PROPHYLAXIS
     Route: 058
     Dates: start: 20210614
  5. DIPYRONE [Concomitant]
     Active Substance: DIPYRONE
     Indication: INJECTION SITE REACTION
     Route: 048
     Dates: start: 20210508, end: 20210513

REACTIONS (2)
  - Disorientation [Recovered/Resolved]
  - Confusional state [Recovered/Resolved]

NARRATIVE: CASE EVENT DATE: 20210610
